FAERS Safety Report 8814007 (Version 1)
Quarter: 2012Q4

REPORT INFORMATION
  Report Type: 
  Country: US (occurrence: US)
  Receive Date: 20120928
  Receipt Date: 20120928
  Transmission Date: 20130627
  Serious: No
  Sender: FDA-Public Use
  Company Number: US-PFIZER INC-2012236891

PATIENT
  Age: 62 Year
  Sex: Female
  Weight: 80.73 kg

DRUGS (9)
  1. CELEBREX [Suspect]
     Indication: MUSCULOSKELETAL PAIN
     Dosage: 200 mg, daily
     Dates: end: 2012
  2. CELEBREX [Suspect]
     Indication: ARTHRITIS
  3. CELEBREX [Suspect]
     Indication: BURSITIS
  4. LIDODERM [Concomitant]
     Indication: ARTHRALGIA
     Dosage: one patch, daily
  5. LEVOTHROID [Concomitant]
     Indication: HYPOTHYROIDISM
     Dosage: 125 ug, daily
  6. XALATAN [Concomitant]
     Dosage: 1 Gtt, daily
     Route: 047
  7. TRUSOPT [Concomitant]
     Dosage: 2 Gtt, 3x/day
     Route: 047
  8. HYTONE [Concomitant]
     Dosage: UNK, 2x/day
  9. PREMARIN VAGINAL CREAM [Concomitant]
     Dosage: UNK

REACTIONS (3)
  - Somnolence [Unknown]
  - Confusional state [Unknown]
  - Palpitations [Unknown]
